FAERS Safety Report 4314167-7 (Version None)
Quarter: 2004Q1

REPORT INFORMATION
  Report Type: 
  Country: None (occurrence: None)
  Receive Date: 20040308
  Receipt Date: 20040308
  Transmission Date: 20041129
  Serious: Yes (Hospitalization)
  Sender: FDA-Public Use
  Company Number: None

PATIENT
  Age: 55 Year
  Sex: Male
  Weight: 80 kg

DRUGS (18)
  1. NAPROXEN [Suspect]
     Indication: HEADACHE
     Dosage: 375 MG BID PRN ORAL
     Route: 048
     Dates: start: 20030122, end: 20030811
  2. NAPROXEN [Suspect]
     Indication: PAIN
     Dosage: 375 MG BID PRN ORAL
     Route: 048
     Dates: start: 20030122, end: 20030811
  3. ASPIRIN [Concomitant]
     Dosage: 81 MG QD ORAL
     Route: 048
  4. FEXOFENADINE HCL [Concomitant]
  5. SIDENAFIL [Concomitant]
  6. BISACODYL [Concomitant]
  7. LACTULOSE [Concomitant]
  8. RABEPRAZOLE SODIUM [Concomitant]
  9. SIMVASTATIN [Concomitant]
  10. DIVALPROEX SODIUM [Concomitant]
  11. TOPIRMATE [Concomitant]
  12. XANAX [Concomitant]
  13. CITALOPRAM [Concomitant]
  14. PRAZOSIN HCL [Concomitant]
  15. QUETIAPINE [Concomitant]
  16. VITAMIN E [Concomitant]
  17. DOCUSATE [Concomitant]
  18. CODEINE [Concomitant]

REACTIONS (6)
  - GASTROINTESTINAL HAEMORRHAGE [None]
  - HAEMATEMESIS [None]
  - HAEMATOCHEZIA [None]
  - HEAD INJURY [None]
  - LOSS OF CONSCIOUSNESS [None]
  - MELAENA [None]
